FAERS Safety Report 20905104 (Version 1)
Quarter: 2022Q2

REPORT INFORMATION
  Report Type: Spontaneous
  Country: US (occurrence: US)
  Receive Date: 20220602
  Receipt Date: 20220602
  Transmission Date: 20220721
  Serious: Yes (Other)
  Sender: FDA-Public Use
  Company Number: US-BRISTOL-MYERS SQUIBB COMPANY-2022-046907

PATIENT
  Age: 68 Year
  Sex: Male
  Weight: 126.09 kg

DRUGS (1)
  1. REVLIMID [Suspect]
     Active Substance: LENALIDOMIDE
     Indication: Plasma cell myeloma
     Dosage: 14DAY, 14DAYS OFF
     Route: 048
     Dates: start: 20210601

REACTIONS (2)
  - Adverse event [Unknown]
  - Off label use [Unknown]
